FAERS Safety Report 8226433-3 (Version None)
Quarter: 2012Q1

REPORT INFORMATION
  Report Type: 
  Country: None (occurrence: None)
  Receive Date: 20120321
  Receipt Date: 20120314
  Transmission Date: 20120608
  Serious: Yes (Hospitalization, Other)
  Sender: FDA-Public Use
  Company Number: JP-CELGENEUS-087-21880-10121088

PATIENT
  Sex: Female

DRUGS (69)
  1. REVLIMID [Suspect]
     Dosage: 10 MILLIGRAM
     Route: 048
     Dates: start: 20110615, end: 20110702
  2. DEXAMETHASONE SODIUM PHOSPHATE [Concomitant]
     Dosage: 20 MILLIGRAM
     Route: 041
     Dates: start: 20110703, end: 20110710
  3. OMEPRAZOLE [Concomitant]
     Indication: PROPHYLAXIS
     Dosage: 20 MILLIGRAM
     Route: 048
     Dates: start: 20100729, end: 20100924
  4. BISOLVON [Concomitant]
     Indication: PROPHYLAXIS
     Dosage: QL
     Route: 055
     Dates: start: 20100724, end: 20100724
  5. KARY UNI [Concomitant]
     Dosage: QL
     Route: 047
     Dates: start: 20101004, end: 20101215
  6. OXINORM [Concomitant]
     Dosage: 7.5 MILLIGRAM
     Route: 048
     Dates: start: 20110323, end: 20110614
  7. PREDNISOLONE [Suspect]
     Dosage: 20 MILLIGRAM
     Route: 048
     Dates: start: 20110518, end: 20110702
  8. DECADRON [Concomitant]
     Indication: MULTIPLE MYELOMA
     Dosage: 4 MILLIGRAM
     Route: 048
     Dates: start: 20100810, end: 20100819
  9. DEXAMETHASONE SODIUM PHOSPHATE [Concomitant]
     Indication: MULTIPLE MYELOMA
     Dosage: 4A
     Route: 041
     Dates: start: 20100730, end: 20100730
  10. AMITRIPTYLINE HCL [Concomitant]
     Dosage: 50 MILLIGRAM
     Route: 048
     Dates: start: 20101001, end: 20110210
  11. OXYCONTIN [Concomitant]
     Dosage: 20 MILLIGRAM
     Route: 048
     Dates: start: 20100802, end: 20100808
  12. KAYTWO N [Concomitant]
     Indication: PROPHYLAXIS
     Dosage: 10 MILLIGRAM
     Route: 065
     Dates: start: 20110703, end: 20110707
  13. REVLIMID [Suspect]
     Dosage: 25 MILLIGRAM
     Route: 048
     Dates: start: 20100827, end: 20100906
  14. DEXAMETHASONE SODIUM PHOSPHATE [Concomitant]
     Indication: PYREXIA
     Dosage: 0.5A
     Route: 041
     Dates: start: 20100731, end: 20100803
  15. OXYCONTIN [Concomitant]
     Dosage: 10 MILLIGRAM
     Route: 048
     Dates: start: 20101004, end: 20110210
  16. OXYCONTIN [Concomitant]
     Dosage: 20 MILLIGRAM
     Route: 048
     Dates: start: 20110411, end: 20110729
  17. REVLIMID [Suspect]
     Dosage: 10 MILLIGRAM
     Route: 048
     Dates: start: 20110113, end: 20110203
  18. REVLIMID [Suspect]
     Dosage: 10 MILLIGRAM
     Route: 048
     Dates: start: 20110309, end: 20110322
  19. CYCLOPHOSPHAMIDE [Suspect]
     Dosage: 50 MILLIGRAM
     Route: 048
     Dates: start: 20110415, end: 20110416
  20. DECADRON [Concomitant]
     Dosage: 1 MILLIGRAM
     Route: 048
     Dates: start: 20100904, end: 20100907
  21. OMEPRAZOLE [Concomitant]
     Dosage: 20 MILLIGRAM
     Route: 048
     Dates: start: 20101004, end: 20110210
  22. OXYCONTIN [Concomitant]
     Dosage: 15 MILLIGRAM
     Route: 048
     Dates: start: 20100809, end: 20100815
  23. SOLU-CORTEF [Concomitant]
     Indication: PROPHYLAXIS
     Dosage: 100 MILLIGRAM
     Route: 041
     Dates: start: 20110704, end: 20110704
  24. GRAN [Concomitant]
     Indication: PROPHYLAXIS
     Dosage: 75 MICROGRAM
     Route: 030
     Dates: start: 20110703, end: 20110710
  25. REVLIMID [Suspect]
     Dosage: 15 MILLIGRAM
     Route: 048
     Dates: start: 20100908, end: 20100914
  26. DEXAMETHASONE ACETATE [Suspect]
     Dosage: 4 MILLIGRAM
     Route: 048
     Dates: start: 20110209, end: 20110308
  27. CYCLOPHOSPHAMIDE [Suspect]
     Indication: MULTIPLE MYELOMA
     Dosage: 100 MILLIGRAM
     Route: 048
     Dates: start: 20110330, end: 20110414
  28. ETODOLAC [Suspect]
     Dosage: 400 MILLIGRAM
     Route: 048
     Dates: start: 20101001, end: 20101201
  29. DECADRON [Concomitant]
     Dosage: 1 MILLIGRAM
     Route: 048
     Dates: start: 20101004, end: 20110112
  30. MAGNESIUM SULFATE [Concomitant]
     Indication: PROPHYLAXIS
     Dosage: 1500 MILLIGRAM
     Route: 048
     Dates: start: 20100729, end: 20100924
  31. MAGNESIUM SULFATE [Concomitant]
     Dosage: 1500 MILLIGRAM
     Route: 048
     Dates: start: 20101005, end: 20101031
  32. MAGNESIUM SULFATE [Concomitant]
     Dosage: 1500 MILLIGRAM
     Route: 048
     Dates: start: 20110209, end: 20110729
  33. ASPIRIN [Concomitant]
     Dosage: 100 MILLIGRAM
     Route: 048
     Dates: start: 20101001, end: 20101201
  34. OXYCONTIN [Concomitant]
     Indication: MULTIPLE MYELOMA
     Dosage: 30 MILLIGRAM
     Route: 048
     Dates: start: 20100726, end: 20100801
  35. OXYCONTIN [Concomitant]
     Dosage: 10 MILLIGRAM
     Route: 048
     Dates: start: 20100827, end: 20100924
  36. ALLOID G [Concomitant]
     Indication: PROPHYLAXIS
     Dosage: 60 MILLILITER
     Route: 048
     Dates: start: 20101213, end: 20101226
  37. OXINORM [Concomitant]
     Dosage: 10 MILLIGRAM
     Route: 048
     Dates: start: 20110309, end: 20110318
  38. REVLIMID [Suspect]
     Indication: MULTIPLE MYELOMA
     Dosage: 25 MILLIGRAM
     Route: 048
     Dates: start: 20100729, end: 20100819
  39. REVLIMID [Suspect]
     Dosage: 10 MILLIGRAM
     Route: 048
     Dates: start: 20110518, end: 20110607
  40. DEXAMETHASONE ACETATE [Suspect]
     Dosage: 16 MILLIGRAM
     Route: 048
     Dates: start: 20110309, end: 20110322
  41. DEXAMETHASONE SODIUM PHOSPHATE [Concomitant]
     Dosage: 0.5A
     Route: 041
     Dates: start: 20100804, end: 20100809
  42. DEXAMETHASONE SODIUM PHOSPHATE [Concomitant]
     Dosage: 4 MILLIGRAM
     Route: 041
     Dates: start: 20110718, end: 20110719
  43. OMEPRAZOLE [Concomitant]
     Dosage: 20 MILLIGRAM
     Route: 048
     Dates: start: 20110209, end: 20110729
  44. AMITRIPTYLINE HCL [Concomitant]
     Dosage: 25 MILLIGRAM
     Route: 048
     Dates: start: 20110209, end: 20110729
  45. OXYCONTIN [Concomitant]
     Dosage: 30 MILLIGRAM
     Route: 048
     Dates: start: 20110309, end: 20110410
  46. KARY UNI [Concomitant]
     Indication: PROPHYLAXIS
     Dosage: QL
     Route: 047
     Dates: start: 20100825, end: 20100825
  47. KARY UNI [Concomitant]
     Dosage: QL
     Route: 047
     Dates: start: 20100827, end: 20100924
  48. REVLIMID [Suspect]
     Dosage: 10 MILLIGRAM
     Route: 048
     Dates: start: 20101004, end: 20101025
  49. REVLIMID [Suspect]
     Dosage: 10 MILLIGRAM
     Route: 048
     Dates: start: 20101101, end: 20101121
  50. PREDNISOLONE [Suspect]
     Indication: MULTIPLE MYELOMA
     Dosage: 20 MILLIGRAM
     Route: 048
     Dates: start: 20110330, end: 20110419
  51. PREDNISOLONE [Suspect]
     Dosage: 20 MILLIGRAM
     Route: 048
     Dates: start: 20110720, end: 20110729
  52. ETODOLAC [Suspect]
     Indication: MULTIPLE MYELOMA
     Dosage: 400 MILLIGRAM
     Route: 048
     Dates: start: 20100729, end: 20100924
  53. DEXAMETHASONE SODIUM PHOSPHATE [Concomitant]
     Dosage: 33 MILLIGRAM
     Route: 041
     Dates: start: 20100827, end: 20100827
  54. AMITRIPTYLINE HCL [Concomitant]
     Dosage: 50 MILLIGRAM
     Route: 048
     Dates: start: 20100729, end: 20100924
  55. ASPIRIN [Concomitant]
     Indication: PROPHYLAXIS
     Dosage: 100 MILLIGRAM
     Route: 048
     Dates: start: 20100729, end: 20100924
  56. VALGANCICLOVIR [Concomitant]
     Indication: PROPHYLAXIS
     Dosage: 900 MILLIGRAM
     Route: 048
     Dates: start: 20100917, end: 20100918
  57. PETROLATUM [Concomitant]
     Indication: PROPHYLAXIS
     Dosage: ADEQUATE DOSE
     Route: 061
     Dates: start: 20110209, end: 20110729
  58. REVLIMID [Suspect]
     Dosage: 10 MILLIGRAM
     Route: 048
     Dates: start: 20110209, end: 20110301
  59. REVLIMID [Suspect]
     Dosage: 10 MILLIGRAM
     Route: 048
     Dates: start: 20110330, end: 20110419
  60. DEXAMETHASONE ACETATE [Suspect]
     Indication: MULTIPLE MYELOMA
     Dosage: 4 MILLIGRAM
     Route: 048
     Dates: start: 20110113, end: 20110209
  61. CYCLOPHOSPHAMIDE [Suspect]
     Dosage: 50 MILLIGRAM
     Route: 048
     Dates: start: 20110615, end: 20110702
  62. DECADRON [Concomitant]
     Dosage: 1 MILLIGRAM
     Route: 048
     Dates: start: 20100820, end: 20100902
  63. DEXAMETHASONE SODIUM PHOSPHATE [Concomitant]
     Dosage: 33 MILLIGRAM
     Route: 041
     Dates: start: 20100903, end: 20100903
  64. DEXAMETHASONE SODIUM PHOSPHATE [Concomitant]
     Dosage: 8 MILLIGRAM
     Route: 041
     Dates: start: 20110711, end: 20110717
  65. OXYCONTIN [Concomitant]
     Dosage: 10 MILLIGRAM
     Route: 048
     Dates: start: 20100816, end: 20100822
  66. OXYCONTIN [Concomitant]
     Dosage: 20 MILLIGRAM
     Route: 048
     Dates: start: 20110209, end: 20110308
  67. ZOMETA [Concomitant]
     Indication: PROPHYLAXIS
     Dosage: 4 MILLIGRAM
     Route: 041
     Dates: start: 20100820, end: 20100820
  68. OXINORM [Concomitant]
     Indication: MULTIPLE MYELOMA
     Dosage: 5 MILLIGRAM
     Route: 048
     Dates: start: 20110209, end: 20110308
  69. OXINORM [Concomitant]
     Dosage: 5 MILLIGRAM
     Route: 048
     Dates: start: 20110615, end: 20110729

REACTIONS (14)
  - WHITE BLOOD CELL COUNT DECREASED [None]
  - CONSTIPATION [None]
  - LEUKOPENIA [None]
  - PNEUMONIA [None]
  - INTERSTITIAL LUNG DISEASE [None]
  - HAEMOGLOBIN DECREASED [None]
  - HYPOKALAEMIA [None]
  - DECUBITUS ULCER [None]
  - PHARYNGITIS [None]
  - PLATELET COUNT DECREASED [None]
  - PYREXIA [None]
  - STOMATITIS [None]
  - DUODENAL ULCER [None]
  - GASTRIC ULCER [None]
